FAERS Safety Report 18136728 (Version 7)
Quarter: 2021Q1

REPORT INFORMATION
  Report Type: Report from Study
  Country: US (occurrence: US)
  Receive Date: 20200811
  Receipt Date: 20210212
  Transmission Date: 20210419
  Serious: No
  Sender: FDA-Public Use
  Company Number: NVSC2020US217830

PATIENT
  Sex: Female

DRUGS (1)
  1. ENTRESTO [Suspect]
     Active Substance: SACUBITRIL\VALSARTAN
     Indication: CARDIAC FAILURE
     Dosage: 1 DF, BID (24/26 MG)
     Route: 048
     Dates: start: 20200725

REACTIONS (10)
  - Weight decreased [Unknown]
  - Dizziness [Recovered/Resolved]
  - Blood pressure fluctuation [Unknown]
  - Malaise [Unknown]
  - Fatigue [Unknown]
  - Alopecia [Unknown]
  - Wrong technique in product usage process [Unknown]
  - Dyspnoea [Unknown]
  - Hypotension [Unknown]
  - Dysphagia [Not Recovered/Not Resolved]
